FAERS Safety Report 6253632-2 (Version None)
Quarter: 2009Q3

REPORT INFORMATION
  Report Type: 
  Country: None (occurrence: None)
  Receive Date: 20090701
  Receipt Date: 20090619
  Transmission Date: 20100115
  Serious: Yes (Death, Other)
  Sender: FDA-Public Use
  Company Number: FR-PFIZER INC-2009182924

PATIENT
  Age: 62 Year

DRUGS (1)
  1. XALATAN [Suspect]
     Indication: GLAUCOMA
     Dosage: 2 GTT, 1X/DAY
     Dates: start: 20000327

REACTIONS (3)
  - CHOROID MELANOMA [None]
  - METASTASES TO LIVER [None]
  - METASTASES TO LUNG [None]
